FAERS Safety Report 12823372 (Version 1)
Quarter: 2016Q4

REPORT INFORMATION
  Report Type: Report from Study
  Country: US (occurrence: US)
  Receive Date: 20161007
  Receipt Date: 20161007
  Transmission Date: 20170207
  Serious: Yes (Other)
  Sender: FDA-Public Use
  Company Number: US-ROCHE-1837213

PATIENT
  Sex: Female

DRUGS (17)
  1. BEVACIZUMAB [Suspect]
     Active Substance: BEVACIZUMAB
     Dosage: COURSE ID 8?OVER 30-90 MINUTES (BEGINNING IN COURSE 2) ON DAY 1
     Route: 042
     Dates: start: 20140317
  2. BEVACIZUMAB [Suspect]
     Active Substance: BEVACIZUMAB
     Dosage: COURSE ID 9?OVER 30-90 MINUTES (BEGINNING IN COURSE 2) ON DAY 1
     Route: 042
     Dates: start: 20140407
  3. BEVACIZUMAB [Suspect]
     Active Substance: BEVACIZUMAB
     Dosage: COURSE ID 3?OVER 30-90 MINUTES (BEGINNING IN COURSE 2) ON DAY 1
     Route: 042
     Dates: start: 20131125
  4. VELIPARIB [Suspect]
     Active Substance: VELIPARIB
     Dosage: COURSE ID 3?PO BID, ON DAYS 1- 21
     Route: 048
     Dates: start: 20131125
  5. VELIPARIB [Suspect]
     Active Substance: VELIPARIB
     Dosage: COURSE ID 6?PO BID, ON DAYS 1- 21
     Route: 048
     Dates: start: 20140203
  6. BEVACIZUMAB [Suspect]
     Active Substance: BEVACIZUMAB
     Dosage: COURSE ID 6?OVER 30-90 MINUTES (BEGINNING IN COURSE 2) ON DAY 1
     Route: 042
     Dates: start: 20140203
  7. VELIPARIB [Suspect]
     Active Substance: VELIPARIB
     Dosage: COURSE ID 2?PO BID, ON DAYS 1- 21
     Route: 048
     Dates: start: 20131104
  8. VELIPARIB [Suspect]
     Active Substance: VELIPARIB
     Dosage: COURSE ID 4?PO BID, ON DAYS 1- 21
     Route: 048
     Dates: start: 20131217
  9. BEVACIZUMAB [Suspect]
     Active Substance: BEVACIZUMAB
     Indication: OVARIAN EPITHELIAL CANCER
     Dosage: COURSE ID 2?OVER 30-90 MINUTES (BEGINNING IN COURSE 2) ON DAY 1
     Route: 042
     Dates: start: 20131104
  10. BEVACIZUMAB [Suspect]
     Active Substance: BEVACIZUMAB
     Dosage: COURSE ID 7?OVER 30-90 MINUTES (BEGINNING IN COURSE 2) ON DAY 1
     Route: 042
     Dates: start: 20140224
  11. BEVACIZUMAB [Suspect]
     Active Substance: BEVACIZUMAB
     Dosage: COURSE ID 12?OVER 30-90 MINUTES (BEGINNING IN COURSE 2) ON DAY 1
     Route: 042
     Dates: start: 20140620
  12. VELIPARIB [Suspect]
     Active Substance: VELIPARIB
     Dosage: COURSE ID 5?PO BID, ON DAYS 1- 21
     Route: 048
     Dates: start: 20140113
  13. BEVACIZUMAB [Suspect]
     Active Substance: BEVACIZUMAB
     Dosage: COURSE ID 5?OVER 30-90 MINUTES (BEGINNING IN COURSE 2) ON DAY 1
     Route: 042
     Dates: start: 20140113
  14. BEVACIZUMAB [Suspect]
     Active Substance: BEVACIZUMAB
     Dosage: COURSE ID 10?OVER 30-90 MINUTES (BEGINNING IN COURSE 2) ON DAY 1
     Route: 042
     Dates: start: 20140428
  15. BEVACIZUMAB [Suspect]
     Active Substance: BEVACIZUMAB
     Dosage: COURSE ID 14?OVER 30-90 MINUTES (BEGINNING IN COURSE 2) ON DAY 1
     Route: 042
     Dates: start: 20140808
  16. VELIPARIB [Suspect]
     Active Substance: VELIPARIB
     Indication: OVARIAN EPITHELIAL CANCER
     Dosage: COURSE ID 1?PO BID, ON DAYS 1- 21
     Route: 048
     Dates: start: 20131010
  17. BEVACIZUMAB [Suspect]
     Active Substance: BEVACIZUMAB
     Dosage: COURSE ID 4?OVER 30-90 MINUTES (BEGINNING IN COURSE 2) ON DAY 1
     Route: 042
     Dates: start: 20131217

REACTIONS (5)
  - Neutrophil count decreased [Unknown]
  - Proteinuria [Unknown]
  - White blood cell count decreased [Unknown]
  - Blood bilirubin increased [Unknown]
  - Anaemia [Unknown]
